FAERS Safety Report 12542646 (Version 1)
Quarter: 2016Q3

REPORT INFORMATION
  Report Type: Spontaneous
  Country: AU (occurrence: AU)
  Receive Date: 20160709
  Receipt Date: 20160709
  Transmission Date: 20161109
  Serious: Yes (Death)
  Sender: FDA-Public Use
  Company Number: AU-CIPLA LTD.-2016AU08331

PATIENT

DRUGS (3)
  1. GEMCITABINE [Suspect]
     Active Substance: GEMCITABINE\GEMCITABINE HYDROCHLORIDE
     Indication: BILIARY NEOPLASM
     Dosage: 1000 MG/M2, ON DAYS 1 AND 8 OF EACH 21 DAY CYCLE
     Route: 065
  2. PANITUMUMAB [Suspect]
     Active Substance: PANITUMUMAB
     Indication: BILIARY NEOPLASM
     Dosage: 9 MG/KG, ON DAY 1 OF EACH 21 DAY CYCLE
     Route: 065
  3. CISPLATIN. [Suspect]
     Active Substance: CISPLATIN
     Indication: BILIARY NEOPLASM
     Dosage: 25 MG/M2, ON DAYS 1 AND 8 OF EACH 21 DAY CYCLE
     Route: 065

REACTIONS (1)
  - Febrile neutropenia [Fatal]
